FAERS Safety Report 13784389 (Version 1)
Quarter: 2017Q3

REPORT INFORMATION
  Report Type: Spontaneous
  Country: US (occurrence: US)
  Receive Date: 20170725
  Receipt Date: 20170725
  Transmission Date: 20171127
  Serious: Yes (Death, Other)
  Sender: FDA-Public Use
  Company Number: US-TEVA-789462USA

PATIENT
  Sex: Female

DRUGS (1)
  1. BACITRACIN ZINC, NEOMYCIN, POLYMYXIN B [Suspect]
     Active Substance: BACITRACIN ZINC\NEOMYCIN SULFATE\POLYMYXIN B SULFATE
     Route: 065

REACTIONS (1)
  - Death [Fatal]
